FAERS Safety Report 18607089 (Version 8)
Quarter: 2023Q4

REPORT INFORMATION
  Report Type: Spontaneous
  Country: US (occurrence: US)
  Receive Date: 20201211
  Receipt Date: 20231005
  Transmission Date: 20240110
  Serious: No
  Sender: FDA-Public Use
  Company Number: US-PFIZER INC-2020489351

PATIENT
  Age: 30 Year
  Sex: Female

DRUGS (4)
  1. XELJANZ XR [Suspect]
     Active Substance: TOFACITINIB CITRATE
     Dosage: 11 MG
     Dates: start: 20201203
  2. XELJANZ XR [Suspect]
     Active Substance: TOFACITINIB CITRATE
     Dosage: 11 MG
     Dates: start: 20201205
  3. XELJANZ XR [Suspect]
     Active Substance: TOFACITINIB CITRATE
     Dosage: 11 MG
     Dates: start: 20201208
  4. XELJANZ XR [Suspect]
     Active Substance: TOFACITINIB CITRATE
     Dosage: 11 MG, 1X/DAY
     Dates: start: 20230810

REACTIONS (11)
  - Drug ineffective [Unknown]
  - Fatigue [Not Recovered/Not Resolved]
  - Oropharyngeal pain [Unknown]
  - Oral pain [Unknown]
  - Confusional state [Unknown]
  - Head discomfort [Unknown]
  - Arthritis [Not Recovered/Not Resolved]
  - Hypersensitivity [Unknown]
  - Somnolence [Not Recovered/Not Resolved]
  - Nasopharyngitis [Unknown]
  - Product dose omission issue [Unknown]

NARRATIVE: CASE EVENT DATE: 20200101
